FAERS Safety Report 20750613 (Version 1)
Quarter: 2022Q2

REPORT INFORMATION
  Report Type: Spontaneous
  Country: US (occurrence: None)
  Receive Date: 20220426
  Receipt Date: 20220426
  Transmission Date: 20220720
  Serious: Yes (Other)
  Sender: FDA-Public Use
  Company Number: None

PATIENT
  Age: 37 Year
  Sex: Female
  Weight: 73.94 kg

DRUGS (2)
  1. BUPROPION [Suspect]
     Active Substance: BUPROPION
     Indication: Depression
     Dosage: FREQUENCY : ONCE;?
     Route: 048
     Dates: start: 20150101, end: 20220104
  2. BUPROPION [Suspect]
     Active Substance: BUPROPION

REACTIONS (4)
  - Anxiety [None]
  - Depression [None]
  - Disturbance in attention [None]
  - Mood swings [None]
